FAERS Safety Report 19185141 (Version 1)
Quarter: 2021Q2

REPORT INFORMATION
  Report Type: Spontaneous
  Country: CA (occurrence: CA)
  Receive Date: 20210427
  Receipt Date: 20210427
  Transmission Date: 20210717
  Serious: Yes (Other)
  Sender: FDA-Public Use
  Company Number: CA-MYLANLABS-2021M1024528

PATIENT
  Age: 78 Year
  Sex: Female

DRUGS (1)
  1. MYLAN?NITRO SUBLINGUAL SPRAY [Suspect]
     Active Substance: NITROGLYCERIN
     Indication: ANGINA PECTORIS
     Dosage: UNK UNK, ONCE

REACTIONS (2)
  - Product administration error [Unknown]
  - Syncope [Unknown]
